FAERS Safety Report 25042794 (Version 2)
Quarter: 2025Q1

REPORT INFORMATION
  Report Type: Spontaneous
  Country: US (occurrence: US)
  Receive Date: 20250305
  Receipt Date: 20250310
  Transmission Date: 20250408
  Serious: No
  Sender: BIOGEN
  Company Number: US-BIOGEN-2025BI01302810

PATIENT
  Sex: Female

DRUGS (1)
  1. TYSABRI [Suspect]
     Active Substance: NATALIZUMAB
     Indication: Multiple sclerosis
     Route: 050
     Dates: start: 20220311

REACTIONS (7)
  - Nervousness [Unknown]
  - Foot fracture [Unknown]
  - Ligament sprain [Unknown]
  - Fall [Recovered/Resolved]
  - Headache [Unknown]
  - Anxiety [Unknown]
  - Hypertension [Unknown]
